FAERS Safety Report 6571973-6 (Version None)
Quarter: 2010Q1

REPORT INFORMATION
  Report Type: 
  Country: None (occurrence: None)
  Receive Date: 20100205
  Receipt Date: 20100126
  Transmission Date: 20100710
  Serious: Yes (Hospitalization)
  Sender: FDA-Public Use
  Company Number: GB-PFIZER INC-2010010693

PATIENT
  Age: 10 Year
  Sex: Female

DRUGS (2)
  1. IRINOTECAN HCL [Suspect]
     Indication: MEDULLOBLASTOMA RECURRENT
     Dosage: 6 MG, CYCLIC
  2. *TEMOZOLOMIDE [Suspect]
     Indication: MEDULLOBLASTOMA RECURRENT
     Dosage: 75 MG, CYCLIC

REACTIONS (1)
  - CONVULSION [None]
